FAERS Safety Report 25883519 (Version 1)
Quarter: 2025Q4

REPORT INFORMATION
  Report Type: Report from Study
  Country: CN (occurrence: CN)
  Receive Date: 20251006
  Receipt Date: 20251006
  Transmission Date: 20260118
  Serious: Yes (Other)
  Sender: Vantive US Healthcare
  Company Number: CN-VANTIVE-2025VAN004537

PATIENT
  Age: 35 Year
  Sex: Male
  Weight: 66 kg

DRUGS (14)
  1. DIANEAL [Suspect]
     Active Substance: CALCIUM CHLORIDE\DEXTROSE\MAGNESIUM CHLORIDE\SODIUM CHLORIDE\SODIUM LACTATE
     Indication: Chronic kidney disease
     Dosage: 2L, 3 BAGS PER DAY
     Route: 033
     Dates: start: 20240923, end: 20241028
  2. DIANEAL [Suspect]
     Active Substance: CALCIUM CHLORIDE\DEXTROSE\MAGNESIUM CHLORIDE\SODIUM CHLORIDE\SODIUM LACTATE
     Dosage: 2L, 3 BAGS PER DAY
     Route: 033
     Dates: start: 20241029
  3. EXTRANEAL [Suspect]
     Active Substance: CALCIUM CHLORIDE\ICODEXTRIN\MAGNESIUM CHLORIDE\SODIUM CHLORIDE\SODIUM LACTATE
     Indication: Chronic kidney disease
     Dosage: 2L, 1 BAG PER DAY
     Route: 033
     Dates: start: 20240923, end: 20241028
  4. EXTRANEAL [Suspect]
     Active Substance: CALCIUM CHLORIDE\ICODEXTRIN\MAGNESIUM CHLORIDE\SODIUM CHLORIDE\SODIUM LACTATE
     Dosage: 2L, 1 BAG PER DAY
     Route: 033
     Dates: start: 20241029
  5. UNSPECIFIED INGREDIENT [Suspect]
     Active Substance: UNSPECIFIED INGREDIENT
     Dosage: UNK
     Route: 065
  6. METOPROLOL [Concomitant]
     Active Substance: METOPROLOL
     Indication: Essential hypertension
     Dosage: 1 TABLET QD (ONCE A DAY)
     Route: 048
     Dates: start: 20240125
  7. ENTECAVIR [Concomitant]
     Active Substance: ENTECAVIR
     Indication: Hepatitis B
     Dosage: 1 TABLET QD (ONCE A DAY)
     Route: 048
     Dates: start: 20240311
  8. AMLODIPINE [Concomitant]
     Active Substance: AMLODIPINE BESYLATE
     Indication: Essential hypertension
     Dosage: 5 MG, QD (ONCE A DAY)
     Route: 048
     Dates: start: 20241028
  9. FERRIC POLYSACCHARIDE COMPLEX [Concomitant]
     Active Substance: FERRIC POLYSACCHARIDE COMPLEX
     Indication: Nephrogenic anaemia
     Dosage: 0.15 G, ONCE A DAY (QD)
     Route: 048
     Dates: start: 20241028
  10. Pegmolesatide [Concomitant]
     Indication: Nephrogenic anaemia
     Dosage: 4 MG, EVERY 4 WEEKLY
     Route: 058
     Dates: start: 20241202, end: 20241202
  11. Pegmolesatide [Concomitant]
     Dosage: 4 MG, EVERY 4 WEEKLY
     Route: 058
     Dates: start: 20250331, end: 20250331
  12. Pegmolesatide [Concomitant]
     Dosage: 4 MG, EVERY 4 WEEKLY
     Route: 058
     Dates: start: 20250502, end: 20250502
  13. Pegmolesatide [Concomitant]
     Dosage: 4 MG, EVERY 4 WEEKLY
     Route: 058
     Dates: start: 20250612, end: 20250612
  14. PANCREATIN [Concomitant]
     Active Substance: PANCRELIPASE
     Indication: Gastritis
     Dosage: 0.3 G, THRICE A DAY (TID)
     Route: 048
     Dates: start: 20241202, end: 202501

REACTIONS (2)
  - Thrombocytopenia [Recovered/Resolved]
  - Thrombocytopenia [Not Recovered/Not Resolved]

NARRATIVE: CASE EVENT DATE: 20250127
